FAERS Safety Report 15329169 (Version 3)
Quarter: 2018Q4

REPORT INFORMATION
  Report Type: Report from Study
  Country: None (occurrence: SE)
  Receive Date: 20180829
  Receipt Date: 20181026
  Transmission Date: 20190204
  Serious: Yes (Death, Other)
  Sender: FDA-Public Use
  Company Number: SE-ABBVIE-18S-150-2464331-00

PATIENT
  Sex: Female
  Weight: 40 kg

DRUGS (2)
  1. DUODOPA [Suspect]
     Active Substance: CARBIDOPA\LEVODOPA
     Route: 050
     Dates: start: 20101114, end: 20181006
  2. DUODOPA [Suspect]
     Active Substance: CARBIDOPA\LEVODOPA
     Indication: PARKINSON^S DISEASE
     Route: 050
     Dates: start: 20100930

REACTIONS (6)
  - Pain [Unknown]
  - Balance disorder [Unknown]
  - Brain neoplasm [Fatal]
  - Parkinson^s disease [Not Recovered/Not Resolved]
  - Motor dysfunction [Unknown]
  - Disorientation [Unknown]

NARRATIVE: CASE EVENT DATE: 2018
